FAERS Safety Report 16856566 (Version 1)
Quarter: 2019Q3

REPORT INFORMATION
  Report Type: Spontaneous
  Country: US (occurrence: US)
  Receive Date: 20190926
  Receipt Date: 20190926
  Transmission Date: 20191005
  Serious: No
  Sender: FDA-Public Use
  Company Number: US-ASSERTIO THERAPEUTICS, INC.-US-2018DEP001715

PATIENT

DRUGS (3)
  1. GRALISE [Suspect]
     Active Substance: GABAPENTIN
     Dosage: 600 MG, QD
     Route: 048
     Dates: start: 20180812, end: 20180814
  2. GRALISE [Suspect]
     Active Substance: GABAPENTIN
     Dosage: 600 MG, UNK
     Dates: start: 20180816
  3. GRALISE [Suspect]
     Active Substance: GABAPENTIN
     Indication: NEURALGIA
     Dosage: 300 MG, QD
     Route: 048
     Dates: start: 20180803, end: 20180811

REACTIONS (12)
  - Thinking abnormal [Not Recovered/Not Resolved]
  - Drug dose titration not performed [Unknown]
  - Product use in unapproved indication [Unknown]
  - Pain [Not Recovered/Not Resolved]
  - Drug titration error [Unknown]
  - Tinnitus [Recovering/Resolving]
  - Sleep disorder [Recovering/Resolving]
  - Adverse event [Unknown]
  - Fatigue [Not Recovered/Not Resolved]
  - Somnolence [Recovering/Resolving]
  - Vision blurred [Not Recovered/Not Resolved]
  - Headache [Unknown]

NARRATIVE: CASE EVENT DATE: 20180803
